FAERS Safety Report 11446498 (Version 1)
Quarter: 2015Q3

REPORT INFORMATION
  Report Type: Spontaneous
  Country: US (occurrence: US)
  Receive Date: 20150831
  Receipt Date: 20150831
  Transmission Date: 20151125
  Serious: No
  Sender: FDA-Public Use
  Company Number: US-ELI_LILLY_AND_COMPANY-US200901002498

PATIENT
  Age: 92 Year
  Sex: Female

DRUGS (4)
  1. CYMBALTA [Suspect]
     Active Substance: DULOXETINE HYDROCHLORIDE
     Dosage: 60 MG, UNK
  2. TYLENOL                                 /SCH/ [Concomitant]
     Dosage: 4 G, DAILY (1/D)
  3. TRAMADOL. [Concomitant]
     Active Substance: TRAMADOL
     Dosage: 50 MG, EVERY 6 HRS
  4. CYMBALTA [Suspect]
     Active Substance: DULOXETINE HYDROCHLORIDE
     Dosage: 30 MG, UNK

REACTIONS (2)
  - Hallucination [Not Recovered/Not Resolved]
  - Paranoia [Not Recovered/Not Resolved]
